FAERS Safety Report 5526461-2 (Version None)
Quarter: 2007Q4

REPORT INFORMATION
  Report Type: 
  Country: None (occurrence: None)
  Receive Date: 20071127
  Receipt Date: 20071116
  Transmission Date: 20080405
  Serious: Yes (Hospitalization)
  Sender: FDA-Public Use
  Company Number: CH-JNJFOC-20071107230

PATIENT
  Age: 44 Year
  Sex: Male
  Weight: 88 kg

DRUGS (4)
  1. RISPERDAL [Suspect]
     Indication: ACUTE PSYCHOSIS
     Route: 048
  2. ENATEC [Concomitant]
     Indication: ESSENTIAL HYPERTENSION
     Route: 048
  3. MIDAZOLAM HCL [Concomitant]
     Indication: INSOMNIA
     Route: 048
  4. METHADONE [Concomitant]
     Indication: DRUG DEPENDENCE
     Route: 048

REACTIONS (1)
  - HYPERTENSION [None]
